FAERS Safety Report 7021078-5 (Version None)
Quarter: 2010Q3

REPORT INFORMATION
  Report Type: 
  Country: None (occurrence: None)
  Receive Date: 20100929
  Receipt Date: 20100917
  Transmission Date: 20110219
  Serious: Yes (Other)
  Sender: FDA-Public Use
  Company Number: US-PFIZER INC-2010094168

PATIENT
  Sex: Male
  Weight: 74 kg

DRUGS (7)
  1. SUTENT [Suspect]
     Indication: RENAL CELL CARCINOMA
     Dosage: 12.5 MG, 4X/DAY
     Route: 048
     Dates: start: 20100218, end: 20100817
  2. RANITIDINE [Concomitant]
     Indication: ABDOMINAL DISCOMFORT
     Dosage: UNK
  3. POTASSIUM [Concomitant]
     Indication: IRON DEFICIENCY
     Dosage: 10 MEQ, UNK
  4. COLCHICINE [Concomitant]
     Indication: GOUT
     Dosage: UNK
  5. ALLOPURINOL [Concomitant]
     Indication: GOUT
     Dosage: UNK
  6. COZAAR [Concomitant]
     Indication: HYPERTENSION
     Dosage: UNK
  7. LOSARTAN [Concomitant]
     Indication: HYPERTENSION
     Dosage: UNK

REACTIONS (8)
  - ANAEMIA [None]
  - CHEST PAIN [None]
  - DISEASE PROGRESSION [None]
  - MALAISE [None]
  - PLATELET COUNT ABNORMAL [None]
  - PRURITUS [None]
  - RENAL CELL CARCINOMA [None]
  - WEIGHT DECREASED [None]
